FAERS Safety Report 8986350 (Version 1)
Quarter: 2012Q4

REPORT INFORMATION
  Report Type: Report from Study
  Country: US (occurrence: US)
  Receive Date: 20121226
  Receipt Date: 20121226
  Transmission Date: 20130627
  Serious: Yes (Other)
  Sender: FDA-Public Use
  Company Number: US-ROCHE-1167738

PATIENT
  Age: 67 Year
  Sex: Male
  Weight: 112 kg

DRUGS (19)
  1. MYCOPHENOLATE MOFETIL [Suspect]
     Indication: RENAL TRANSPLANT
     Route: 048
     Dates: start: 20120702, end: 20120924
  2. MYCOPHENOLATE MOFETIL [Suspect]
     Route: 048
     Dates: start: 20120925, end: 20121007
  3. MYCOPHENOLATE MOFETIL [Suspect]
     Dosage: 500 MG AM, 750 MG PRN
     Route: 048
     Dates: start: 20121008, end: 20121008
  4. VALGANCICLOVIR [Suspect]
     Indication: PROPHYLAXIS
     Route: 048
     Dates: start: 20120713, end: 20120911
  5. UNSPECIFIED INGREDIENTS [Suspect]
     Indication: PROPHYLAXIS
     Route: 042
     Dates: start: 20120702, end: 20120702
  6. PROGRAF [Suspect]
     Indication: RENAL TRANSPLANT
     Route: 048
     Dates: start: 20120911
  7. PROGRAF [Suspect]
     Route: 048
     Dates: start: 20120703, end: 20120703
  8. PROGRAF [Suspect]
     Dosage: 1 MG AM , 2 MG PM
     Route: 048
     Dates: start: 20120704, end: 20120704
  9. PROGRAF [Suspect]
     Route: 048
     Dates: start: 20120705, end: 20120705
  10. PROGRAF [Suspect]
     Dosage: 2 MG AM 3 MG PM
     Route: 048
     Dates: start: 20120711, end: 20120711
  11. PROGRAF [Suspect]
     Route: 048
     Dates: start: 20120712, end: 20120722
  12. PROGRAF [Suspect]
     Dosage: 2 MG AM , 3 MG PM
     Route: 048
     Dates: start: 20120723, end: 20120725
  13. PROGRAF [Suspect]
     Route: 048
     Dates: start: 20120726, end: 20120812
  14. PROGRAF [Suspect]
     Dosage: 2 MG AM , 3 MG PM
     Route: 048
     Dates: start: 20120813, end: 20120910
  15. COUMADIN [Concomitant]
     Dosage: monday, wednesday, friday
     Route: 065
     Dates: start: 20120730
  16. COUMADIN [Concomitant]
     Dosage: tuesday, thursday and saturday and sunday
     Route: 065
     Dates: start: 20120730
  17. PREDNISONE [Concomitant]
     Route: 065
     Dates: start: 20120702, end: 20120815
  18. PREDNISONE [Concomitant]
     Route: 065
  19. PREDNISONE [Concomitant]
     Route: 065

REACTIONS (1)
  - Agranulocytosis [Not Recovered/Not Resolved]
